FAERS Safety Report 23792267 (Version 3)
Quarter: 2024Q3

REPORT INFORMATION
  Report Type: Spontaneous
  Country: US (occurrence: US)
  Receive Date: 20240429
  Receipt Date: 20240801
  Transmission Date: 20241017
  Serious: Yes (Other)
  Sender: ORGANON
  Company Number: US-ORGANON-O2404USA003015

PATIENT
  Age: 69 Year
  Sex: Female
  Weight: 41.723 kg

DRUGS (26)
  1. COZAAR [Suspect]
     Active Substance: LOSARTAN POTASSIUM
     Dosage: UNK
     Route: 048
  2. REMERON [Suspect]
     Active Substance: MIRTAZAPINE
     Indication: Product used for unknown indication
     Dosage: 7.5 MILLIGRAM
     Route: 048
  3. CABOMETYX [Suspect]
     Active Substance: CABOZANTINIB S-MALATE
     Indication: Hepatocellular carcinoma
     Dosage: 40 MILLIGRAM
     Route: 048
     Dates: start: 20231114, end: 20231130
  4. CABOMETYX [Suspect]
     Active Substance: CABOZANTINIB S-MALATE
     Indication: Neuroendocrine tumour
     Dosage: 20 MILLIGRAM, QD
     Route: 048
     Dates: start: 20231130, end: 20240119
  5. CABOMETYX [Suspect]
     Active Substance: CABOZANTINIB S-MALATE
     Indication: Metastases to bone
     Dosage: 20 MILLIGRAM, QD
     Route: 048
     Dates: start: 20231213
  6. CABOMETYX [Suspect]
     Active Substance: CABOZANTINIB S-MALATE
     Indication: Metastases to liver
     Dosage: 20 MILLIGRAM, QD
     Route: 048
     Dates: end: 20240207
  7. CABOMETYX [Suspect]
     Active Substance: CABOZANTINIB S-MALATE
     Indication: Tongue neoplasm malignant stage unspecified
     Dosage: 20 MILLIGRAM, QD
     Route: 048
     Dates: end: 20240514
  8. ZOMETA [Suspect]
     Active Substance: ZOLEDRONIC ACID
     Indication: Product used for unknown indication
     Dosage: UNK
     Route: 065
  9. KEYTRUDA [Suspect]
     Active Substance: PEMBROLIZUMAB
     Indication: Tongue neoplasm malignant stage unspecified
     Dosage: Q6 WEEKS
     Dates: start: 20231114
  10. LINZESS [Suspect]
     Active Substance: LINACLOTIDE
     Indication: Product used for unknown indication
     Dosage: 72 MICROGRAM
  11. LOSARTAN POTASSIUM [Concomitant]
     Active Substance: LOSARTAN POTASSIUM
     Dosage: UNK
     Route: 048
  12. AMLODIPINE BESYLATE [Concomitant]
     Active Substance: AMLODIPINE BESYLATE
     Dosage: UNK
  13. ONDANSETRON HYDROCHLORIDE [Concomitant]
     Active Substance: ONDANSETRON HYDROCHLORIDE
     Dosage: UNK
  14. PHENERGAN [Concomitant]
     Active Substance: PROMETHAZINE HYDROCHLORIDE
     Dosage: UNK
  15. PEPTO-BISMOL [Concomitant]
     Active Substance: BISMUTH SUBSALICYLATE
     Dosage: UNK
  16. TUMS [Concomitant]
     Active Substance: CALCIUM CARBONATE
     Dosage: UNK
  17. BIOTENE DRY MOUTH [SODIUM FLUOROPHOSPHATE] [Concomitant]
     Dosage: UNK
  18. ENEMA [PHOSPHORIC ACID SODIUM;SODIUM PHOSPHATE DIBASIC] [Concomitant]
     Dosage: UNK
  19. MORNIFLUMATE [Concomitant]
     Active Substance: MORNIFLUMATE
  20. VITAMINS NOS [Concomitant]
     Active Substance: VITAMINS
  21. SYNTHROID [Concomitant]
     Active Substance: LEVOTHYROXINE SODIUM
  22. IBUPROFEN [Concomitant]
     Active Substance: IBUPROFEN
  23. MILK OF MAGNESIA [Concomitant]
     Active Substance: MAGNESIUM HYDROXIDE
  24. HYOSCYAMINE [Concomitant]
     Active Substance: HYOSCYAMINE
  25. OMEPRAZOLE [Concomitant]
     Active Substance: OMEPRAZOLE
  26. ATOVAQUONE [Concomitant]
     Active Substance: ATOVAQUONE

REACTIONS (48)
  - Osteonecrosis of jaw [Unknown]
  - Spinal cord compression [Unknown]
  - Hydronephrosis [Not Recovered/Not Resolved]
  - Malignant neoplasm progression [Unknown]
  - Metastases to central nervous system [Unknown]
  - Metastases to meninges [Unknown]
  - Urinary retention [Not Recovered/Not Resolved]
  - Haematochezia [Not Recovered/Not Resolved]
  - Radiotherapy [Unknown]
  - Contusion [Not Recovered/Not Resolved]
  - Haematoma [Unknown]
  - Impaired healing [Not Recovered/Not Resolved]
  - Blood alkaline phosphatase increased [Unknown]
  - Gingival bleeding [Not Recovered/Not Resolved]
  - Nausea [Not Recovered/Not Resolved]
  - Weight decreased [Not Recovered/Not Resolved]
  - Decreased appetite [Not Recovered/Not Resolved]
  - Fatigue [Not Recovered/Not Resolved]
  - Constipation [Not Recovered/Not Resolved]
  - COVID-19 [Recovering/Resolving]
  - Spinal pain [Not Recovered/Not Resolved]
  - Somnolence [Not Recovered/Not Resolved]
  - Blood chromogranin A increased [Unknown]
  - Blood bilirubin abnormal [Unknown]
  - Back pain [Not Recovered/Not Resolved]
  - Anaemia [Recovering/Resolving]
  - Haemorrhage [Unknown]
  - Diarrhoea [Not Recovered/Not Resolved]
  - Epistaxis [Unknown]
  - Asthenia [Unknown]
  - Stomatitis [Unknown]
  - Dry skin [Unknown]
  - Urinary incontinence [Unknown]
  - Neuralgia [Unknown]
  - Lip dry [Unknown]
  - Joint swelling [Unknown]
  - Anxiety [Unknown]
  - Urinary tract infection [Unknown]
  - Joint stiffness [Unknown]
  - Gastrooesophageal reflux disease [Unknown]
  - Vomiting [Unknown]
  - Dry mouth [Unknown]
  - Arthralgia [Unknown]
  - Blood urine present [Unknown]
  - Abdominal pain upper [Not Recovered/Not Resolved]
  - Pruritus [Recovered/Resolved]
  - Eye pruritus [Recovered/Resolved]
  - Alanine aminotransferase increased [Unknown]

NARRATIVE: CASE EVENT DATE: 20231101
